FAERS Safety Report 5044162-4 (Version None)
Quarter: 2006Q2

REPORT INFORMATION
  Report Type: 
  Country: None (occurrence: None)
  Receive Date: 20060629
  Receipt Date: 20060620
  Transmission Date: 20061013
  Serious: Yes (Hospitalization)
  Sender: FDA-Public Use
  Company Number: US-2006-010291

PATIENT
  Age: 41 Year
  Sex: Female
  Weight: 50.8 kg

DRUGS (7)
  1. BETASERON (INTERFERON BETA - 1B) INJECTION, 250UG [Suspect]
     Indication: RELAPSING-REMITTING MULTIPLE SCLEROSIS
     Dosage: 8 MIU, EVERY 2D, SUBCUTANEOUS; SEE IMAGE
     Route: 058
     Dates: start: 19950101, end: 20060401
  2. BETASERON (INTERFERON BETA - 1B) INJECTION, 250UG [Suspect]
     Indication: RELAPSING-REMITTING MULTIPLE SCLEROSIS
     Dosage: 8 MIU, EVERY 2D, SUBCUTANEOUS; SEE IMAGE
     Route: 058
     Dates: start: 20060403
  3. PREDNISONE [Concomitant]
  4. DICLOFENAC [Concomitant]
  5. NORTRIPTYLINE HCL [Concomitant]
  6. DEPAKOTE [Concomitant]
  7. FLUROFEN (FLURBIPROFEN) [Concomitant]

REACTIONS (2)
  - ABASIA [None]
  - CELLULITIS [None]
